FAERS Safety Report 19311235 (Version 1)
Quarter: 2021Q2

REPORT INFORMATION
  Report Type: Spontaneous
  Country: US (occurrence: US)
  Receive Date: 20210527
  Receipt Date: 20210527
  Transmission Date: 20210717
  Serious: Yes (Other)
  Sender: FDA-Public Use
  Company Number: US-GLAXOSMITHKLINE-US2021GSK109327

PATIENT
  Sex: Male

DRUGS (7)
  1. RANITIDINE. [Suspect]
     Active Substance: RANITIDINE
     Indication: DYSPEPSIA
     Dosage: 75 MG,PERIODS OF NON?USE
     Route: 065
     Dates: start: 198903, end: 200506
  2. RANITIDINE. [Suspect]
     Active Substance: RANITIDINE
     Indication: DYSPEPSIA
     Dosage: 75 MG,PERIODS OF NON?USE
     Route: 065
     Dates: start: 198903, end: 200506
  3. RANITIDINE CAPSULE [Suspect]
     Active Substance: RANITIDINE
     Indication: DYSPEPSIA
     Dosage: 75 MG,PERIODS OF NON?USE
     Route: 065
     Dates: start: 198903, end: 200506
  4. RANITIDINE. [Suspect]
     Active Substance: RANITIDINE
     Indication: DYSPEPSIA
     Dosage: 75 MG,PERIODS OF NON?USE
     Route: 065
     Dates: start: 198903, end: 200506
  5. ZANTAC [Suspect]
     Active Substance: RANITIDINE HYDROCHLORIDE
     Indication: DYSPEPSIA
     Dosage: 75 MG,PERIODS OF NON?USE
     Route: 065
     Dates: start: 198901, end: 200501
  6. ZANTAC [Suspect]
     Active Substance: RANITIDINE HYDROCHLORIDE
     Indication: DYSPEPSIA
     Dosage: 75 MG,PERIODS OF NON?USE
     Route: 065
     Dates: start: 198901, end: 200501
  7. RANITIDINE HYDROCHLORIDE. [Suspect]
     Active Substance: RANITIDINE HYDROCHLORIDE
     Indication: DYSPEPSIA
     Dosage: 50 MG/ML,OCCASIONAL
     Route: 065
     Dates: start: 198903, end: 200506

REACTIONS (1)
  - Prostate cancer [Unknown]
